FAERS Safety Report 25307566 (Version 2)
Quarter: 2025Q2

REPORT INFORMATION
  Report Type: Spontaneous
  Country: US (occurrence: US)
  Receive Date: 20250513
  Receipt Date: 20250515
  Transmission Date: 20250716
  Serious: Yes (Hospitalization)
  Sender: RECORDATI
  Company Number: US-ORPHANEU-2025003299

PATIENT
  Sex: Female
  Weight: 66.667 kg

DRUGS (8)
  1. ISTURISA [Suspect]
     Active Substance: OSILODROSTAT PHOSPHATE
     Indication: Cushing^s syndrome
     Route: 048
  2. ADVIL [Concomitant]
     Active Substance: IBUPROFEN
     Indication: Product used for unknown indication
     Route: 048
     Dates: start: 20240215
  3. DORZOLAMIDE HYDROCHLORIDE\TIMOLOL MALEATE [Concomitant]
     Active Substance: DORZOLAMIDE HYDROCHLORIDE\TIMOLOL MALEATE
     Indication: Product used for unknown indication
     Dosage: 2-0.5 PERCENT, BID
     Route: 047
     Dates: start: 20220601
  4. FUROSEMIDE [Concomitant]
     Active Substance: FUROSEMIDE
     Indication: Product used for unknown indication
     Dosage: 20 MILLIGRAM, Q3W (TABLET)
     Route: 048
     Dates: start: 20211214
  5. LATANOPROST [Concomitant]
     Active Substance: LATANOPROST
     Indication: Product used for unknown indication
     Route: 047
     Dates: start: 20220601
  6. LEVOTHYROXINE SODIUM [Concomitant]
     Active Substance: LEVOTHYROXINE SODIUM
     Indication: Product used for unknown indication
     Dosage: 150 MICROGRAM, QD (TABLET)
     Route: 048
     Dates: start: 19970901
  7. VITAMIN B12 [Concomitant]
     Active Substance: CYANOCOBALAMIN
     Indication: Product used for unknown indication
     Dosage: 1000 MICROGRAM, QD (TABLET)
     Route: 048
     Dates: start: 20211214
  8. VITAMIN D3 [Concomitant]
     Active Substance: CHOLECALCIFEROL
     Indication: Product used for unknown indication
     Dosage: 3000 IU INTERNATIONAL UNIT, QD (CAPSULE)
     Route: 048
     Dates: start: 20211214

REACTIONS (1)
  - Neuroendocrine tumour of the lung [Unknown]
